FAERS Safety Report 23305716 (Version 1)
Quarter: 2023Q4

REPORT INFORMATION
  Report Type: Report from Study
  Country: US (occurrence: US)
  Receive Date: 20231218
  Receipt Date: 20231218
  Transmission Date: 20240110
  Serious: No
  Sender: FDA-Public Use
  Company Number: US-ACADIA PHARMACEUTICALS INC.-ACA-2023-TRF-005421

PATIENT
  Sex: Female

DRUGS (2)
  1. DAYBUE [Suspect]
     Active Substance: TROFINETIDE
     Dosage: UNK
     Route: 065
  2. ONFI [Suspect]
     Active Substance: CLOBAZAM
     Dosage: LOWERED HER ONFI TO 3ML IN THE AM AND 5 AT BEDTIME

REACTIONS (3)
  - Drug interaction [Recovering/Resolving]
  - Hypersomnia [Recovering/Resolving]
  - Fatigue [Recovering/Resolving]
